FAERS Safety Report 10871781 (Version 1)
Quarter: 2015Q1

REPORT INFORMATION
  Report Type: Spontaneous
  Country: None (occurrence: US)
  Receive Date: 20150226
  Receipt Date: 20150226
  Transmission Date: 20150721
  Serious: Yes (Other)
  Sender: FDA-Public Use
  Company Number: 2015SP000572

PATIENT
  Sex: Male

DRUGS (9)
  1. GENERIC ESZOPICLONE [Suspect]
     Active Substance: ESZOPICLONE
     Indication: INSOMNIA
     Route: 048
  2. AMBIEN [Concomitant]
     Active Substance: ZOLPIDEM TARTRATE
  3. CLONAZEPAM. [Concomitant]
     Active Substance: CLONAZEPAM
  4. XANAX [Concomitant]
     Active Substance: ALPRAZOLAM
  5. LUNESTA [Concomitant]
     Active Substance: ESZOPICLONE
     Indication: INSOMNIA
     Route: 048
  6. DALMANE [Concomitant]
     Active Substance: FLURAZEPAM HYDROCHLORIDE
  7. WELLBUTRIN XL [Concomitant]
     Active Substance: BUPROPION HYDROCHLORIDE
  8. DESYREL [Concomitant]
     Active Substance: TRAZODONE HYDROCHLORIDE
  9. REMERON [Concomitant]
     Active Substance: MIRTAZAPINE

REACTIONS (3)
  - Anxiety [Unknown]
  - Diabetes mellitus [Unknown]
  - Hypertension [Unknown]
